FAERS Safety Report 6701226-4 (Version None)
Quarter: 2010Q2

REPORT INFORMATION
  Report Type: 
  Country: None (occurrence: None)
  Receive Date: 20100427
  Receipt Date: 20100412
  Transmission Date: 20101027
  Serious: Yes (Other)
  Sender: FDA-Public Use
  Company Number: LEO-2010-00299

PATIENT
  Age: 54 Year
  Sex: Female

DRUGS (7)
  1. INNOHEP         (TINZAPARIN SODIUM) (10000 IU INJECTION) [Suspect]
     Indication: ANTICOAGULANT THERAPY
     Dosage: SUBCUTANEOUS
     Route: 058
     Dates: start: 20100120, end: 20100125
  2. DOLIPRANE       (PARACETAMOL) (1000 MILLIGRAM, TABLETS) [Concomitant]
  3. CHONDROSULF       (CHONDROITIN SULFATE SODIUM) [Concomitant]
  4. LOVENOX [Concomitant]
  5. PROFENID (KETOPROFEN) (100 MILLIGRAM, TABLETS) [Concomitant]
  6. INEXIUM (ESOMEPRAZOLE MAGNESIUM) (20 MILLIGRAM, TABLETS) [Concomitant]
  7. COZAAR [Concomitant]

REACTIONS (2)
  - DRUG INEFFECTIVE [None]
  - THROMBOPHLEBITIS [None]
